FAERS Safety Report 8180296-3 (Version None)
Quarter: 2012Q1

REPORT INFORMATION
  Report Type: 
  Country: None (occurrence: None)
  Receive Date: 20120302
  Receipt Date: 20120224
  Transmission Date: 20120608
  Serious: Yes (Death)
  Sender: FDA-Public Use
  Company Number: IT-BAXTER-2012BH005734

PATIENT
  Age: 78 Year
  Sex: Male
  Weight: 65 kg

DRUGS (10)
  1. VINCRISTINE SULFATE [Suspect]
     Route: 042
  2. PREDNISONE TAB [Suspect]
     Indication: DIFFUSE LARGE B-CELL LYMPHOMA
     Route: 048
     Dates: start: 20120127, end: 20120127
  3. STUDY DRUG [Suspect]
     Indication: DIFFUSE LARGE B-CELL LYMPHOMA
     Route: 042
     Dates: start: 20120125
  4. DOXORUBICIN HCL [Suspect]
     Route: 042
  5. CYCLOPHOSPHAMIDE [Suspect]
     Indication: DIFFUSE LARGE B-CELL LYMPHOMA
     Route: 042
     Dates: start: 20120126, end: 20120126
  6. DOXORUBICIN HCL [Suspect]
     Indication: DIFFUSE LARGE B-CELL LYMPHOMA
     Route: 042
     Dates: start: 20120126, end: 20120126
  7. VINCRISTINE SULFATE [Suspect]
     Indication: DIFFUSE LARGE B-CELL LYMPHOMA
     Route: 042
     Dates: start: 20120126, end: 20120126
  8. PREDNISONE TAB [Suspect]
     Route: 048
  9. CYCLOPHOSPHAMIDE [Suspect]
     Route: 042
  10. STUDY DRUG [Suspect]
     Route: 042

REACTIONS (1)
  - MYOCARDIAL INFARCTION [None]
